FAERS Safety Report 6949079-3 (Version None)
Quarter: 2010Q3

REPORT INFORMATION
  Report Type: 
  Country: None (occurrence: None)
  Receive Date: 20100828
  Receipt Date: 20091203
  Transmission Date: 20110219
  Serious: No
  Sender: FDA-Public Use
  Company Number: US-ABBOTT-09P-163-0612134-00

PATIENT
  Sex: Male
  Weight: 77.18 kg

DRUGS (1)
  1. NIASPAN [Suspect]
     Indication: BLOOD CHOLESTEROL INCREASED
     Dates: start: 20091130

REACTIONS (6)
  - FEELING HOT [None]
  - FLUSHING [None]
  - INSOMNIA [None]
  - MALAISE [None]
  - PRURITUS [None]
  - SOMNOLENCE [None]
